FAERS Safety Report 16050855 (Version 1)
Quarter: 2019Q1

REPORT INFORMATION
  Report Type: Spontaneous
  Country: US (occurrence: US)
  Receive Date: 20190308
  Receipt Date: 20190308
  Transmission Date: 20190418
  Serious: No
  Sender: FDA-Public Use
  Company Number: US-PFIZER INC-2019094692

PATIENT
  Age: 80 Year
  Sex: Female

DRUGS (12)
  1. ATORVASTATIN CALCIUM. [Suspect]
     Active Substance: ATORVASTATIN CALCIUM
     Dosage: UNK
  2. DOXYCYCLINE HYCLATE. [Suspect]
     Active Substance: DOXYCYCLINE HYCLATE
     Dosage: UNK
  3. CODEINE [Suspect]
     Active Substance: CODEINE
     Dosage: UNK
  4. SULINDAC. [Suspect]
     Active Substance: SULINDAC
     Dosage: UNK
  5. GUAIFENESIN. [Suspect]
     Active Substance: GUAIFENESIN
     Dosage: UNK
  6. TRAMADOL. [Suspect]
     Active Substance: TRAMADOL
     Dosage: UNK
  7. MORPHINE SULFATE. [Suspect]
     Active Substance: MORPHINE SULFATE
     Dosage: UNK
  8. HYOSCYAMINE. [Suspect]
     Active Substance: HYOSCYAMINE
     Dosage: UNK
  9. CITALOPRAM [Suspect]
     Active Substance: CITALOPRAM HYDROBROMIDE
     Dosage: UNK
  10. LISINOPRIL. [Suspect]
     Active Substance: LISINOPRIL
     Dosage: UNK
  11. PERCOCET [Suspect]
     Active Substance: ACETAMINOPHEN\OXYCODONE HYDROCHLORIDE
     Dosage: UNK
  12. CEPHALEXIN. [Suspect]
     Active Substance: CEPHALEXIN
     Dosage: UNK

REACTIONS (1)
  - Drug hypersensitivity [Unknown]
